FAERS Safety Report 9962677 (Version 2)
Quarter: 2014Q1

REPORT INFORMATION
  Report Type: Report from Study
  Country: US (occurrence: US)
  Receive Date: 20140305
  Receipt Date: 20140305
  Transmission Date: 20141002
  Serious: No
  Sender: FDA-Public Use
  Company Number: US-ABBVIE-13P-163-1097363-00

PATIENT
  Age: 76 Year
  Sex: Female
  Weight: 68.55 kg

DRUGS (4)
  1. HUMIRA [Suspect]
     Indication: RHEUMATOID ARTHRITIS
     Dosage: YEARS AND YEARS
     Route: 058
     Dates: start: 2008, end: 201304
  2. HUMIRA [Suspect]
     Route: 058
     Dates: start: 201306
  3. LISINOPRIL [Concomitant]
     Indication: HYPERTENSION
  4. PRAVASTATIN [Concomitant]
     Indication: BLOOD CHOLESTEROL INCREASED

REACTIONS (4)
  - Wound [Recovered/Resolved]
  - Erythema [Recovered/Resolved]
  - Pain in extremity [Recovered/Resolved]
  - Wound [Recovered/Resolved]
